FAERS Safety Report 17697006 (Version 5)
Quarter: 2020Q2

REPORT INFORMATION
  Report Type: Report from Study
  Country: FR (occurrence: FR)
  Receive Date: 20200423
  Receipt Date: 20200609
  Transmission Date: 20200714
  Serious: Yes (Death, Other)
  Sender: FDA-Public Use
  Company Number: FR-ADVANZ PHARMA-202004003543

PATIENT

DRUGS (10)
  1. CARBOMERE [Concomitant]
     Dosage: UNK
     Dates: start: 20200416, end: 20200425
  2. ENOXAPARIN [Concomitant]
     Active Substance: ENOXAPARIN
     Indication: ANTICOAGULANT THERAPY
     Dosage: UNK
     Dates: start: 20200324, end: 20200421
  3. VITAMIN A [RETINOL] [Concomitant]
     Active Substance: RETINOL
     Dosage: UNK
     Dates: start: 20200416, end: 20200425
  4. RIFAMYCINE  [RIFAMYCIN] [Concomitant]
     Dosage: UNK
     Dates: start: 20200420
  5. HYDROXYCHLOROQUINE SULFATE (AUTHORIZED GENERIC),PLAQUENIL [Suspect]
     Active Substance: HYDROXYCHLOROQUINE SULFATE
     Indication: COVID-19
     Dosage: 600 MG, QD, (FILM COATED TABLET)
     Dates: start: 20200324, end: 20200324
  6. HYDROXYCHLOROQUINE SULFATE (AUTHORIZED GENERIC),PLAQUENIL [Suspect]
     Active Substance: HYDROXYCHLOROQUINE SULFATE
     Dosage: 1000 MG, QD, (FILM COATED TABLET)
     Dates: start: 20200325, end: 20200325
  7. METOCLOPRAMIDE. [Concomitant]
     Active Substance: METOCLOPRAMIDE
     Dosage: UNK
     Dates: start: 20200422, end: 20200425
  8. HYDROXYCHLOROQUINE SULFATE (AUTHORIZED GENERIC),PLAQUENIL [Suspect]
     Active Substance: HYDROXYCHLOROQUINE SULFATE
     Dosage: 400 MG, QD, (FILM COATED TABLET)
     Dates: start: 20200326, end: 20200327
  9. INSULIN [Concomitant]
     Active Substance: INSULIN NOS
     Indication: PROPHYLAXIS
     Dosage: UNK
     Dates: start: 20200325
  10. CEFTRIAXONE. [Concomitant]
     Active Substance: CEFTRIAXONE
     Indication: CORONAVIRUS INFECTION
     Dosage: UNK
     Dates: start: 20200323, end: 20200330

REACTIONS (6)
  - Multiple organ dysfunction syndrome [Fatal]
  - Pneumonia bacterial [Unknown]
  - Off label use [Unknown]
  - Condition aggravated [Fatal]
  - Acute kidney injury [Not Recovered/Not Resolved]
  - Acute respiratory distress syndrome [Fatal]

NARRATIVE: CASE EVENT DATE: 20200324
